FAERS Safety Report 20045980 (Version 1)
Quarter: 2021Q4

REPORT INFORMATION
  Report Type: Spontaneous
  Country: AF (occurrence: None)
  Receive Date: 20211108
  Receipt Date: 20211108
  Transmission Date: 20220303
  Serious: Yes (Other)
  Sender: FDA-Public Use
  Company Number: None

PATIENT
  Age: 78 Year
  Sex: Female
  Weight: 76.5 kg

DRUGS (2)
  1. XIIDRA [Suspect]
     Active Substance: LIFITEGRAST
     Indication: Dry eye
     Route: 047
  2. SIMVASTATIN [Suspect]
     Active Substance: SIMVASTATIN

REACTIONS (3)
  - Blood pressure increased [None]
  - Hemiparesis [None]
  - Orthosis user [None]

NARRATIVE: CASE EVENT DATE: 20211017
